FAERS Safety Report 25993382 (Version 2)
Quarter: 2025Q4

REPORT INFORMATION
  Report Type: Spontaneous
  Country: US (occurrence: US)
  Receive Date: 20251104
  Receipt Date: 20251118
  Transmission Date: 20260118
  Serious: Yes (Other)
  Sender: TEVA
  Company Number: US-TEVA-VS-3387029

PATIENT
  Age: 54 Year
  Sex: Male

DRUGS (10)
  1. PREDNISOLONE [Suspect]
     Active Substance: PREDNISOLONE
     Indication: Cystoid macular oedema
     Dosage: 7 MONTHS PRIOR TO SURGERY AND 3 YEARS POST SURGERY
     Route: 061
  2. KETOROLAC [Suspect]
     Active Substance: KETOROLAC TROMETHAMINE
     Indication: Cystoid macular oedema
     Dosage: 3 YEARS POST SURGERY
     Route: 061
  3. KETOROLAC [Suspect]
     Active Substance: KETOROLAC TROMETHAMINE
     Indication: Cystoid macular oedema
     Dosage: OVER A 10-MONTH PERIOD
     Route: 061
  4. TRIAMCINOLONE [Suspect]
     Active Substance: TRIAMCINOLONE
     Indication: Cystoid macular oedema
     Dosage: FOR THREE DOSES, OVER A 10-MONTH PERIOD
     Route: 065
  5. AFLIBERCEPT [Suspect]
     Active Substance: AFLIBERCEPT
     Indication: Cystoid macular oedema
     Dosage: 2MG IN 0.05CC OVER A 10-MONTH PERIOD;ROA:INTRAVITREAL
     Route: 065
  6. DIMETHICONE [Suspect]
     Active Substance: DIMETHICONE
     Indication: Rhegmatogenous retinal detachment
     Dosage: FILL PLACEMENT RE-CHALLENGED
     Route: 065
  7. DIMETHICONE [Suspect]
     Active Substance: DIMETHICONE
     Indication: Rhegmatogenous retinal detachment
     Dosage: FILL PLACEMENT
     Route: 065
  8. DIFLUPREDNATE [Suspect]
     Active Substance: DIFLUPREDNATE
     Indication: Cystoid macular oedema
     Dosage: OVER A 10-MONTH PERIOD
     Route: 061
  9. VALACYCLOVIR [Concomitant]
     Active Substance: VALACYCLOVIR HYDROCHLORIDE
     Indication: Prophylaxis
     Dosage: TIME INTERVAL: 0.33333333 DAYS: THRICE DAILY
     Route: 048
  10. VALACYCLOVIR [Concomitant]
     Active Substance: VALACYCLOVIR HYDROCHLORIDE
     Indication: Prophylaxis
     Dosage: TIME INTERVAL: 0.33333333 DAYS: THRICE DAILY FOR 3 YEARS, THEN CONTINUED FOR ADDITIONAL 12 MONTHS
     Route: 048

REACTIONS (2)
  - Drug ineffective [Unknown]
  - Cystoid macular oedema [Recovered/Resolved]
